FAERS Safety Report 5645141-6 (Version None)
Quarter: 2008Q1

REPORT INFORMATION
  Report Type: 
  Country: None (occurrence: None)
  Receive Date: 20080229
  Receipt Date: 20080226
  Transmission Date: 20080703
  Serious: Yes (Other)
  Sender: FDA-Public Use
  Company Number: DE-SP-2008-00602

PATIENT
  Sex: Male

DRUGS (1)
  1. IMMUCYST [Suspect]
     Indication: BLADDER CANCER

REACTIONS (3)
  - CIRCULATORY COLLAPSE [None]
  - PULMONARY OEDEMA [None]
  - URINARY RETENTION [None]
